FAERS Safety Report 4960908-5 (Version None)
Quarter: 2006Q2

REPORT INFORMATION
  Report Type: 
  Country: None (occurrence: None)
  Receive Date: 20060403
  Receipt Date: 20060209
  Transmission Date: 20061013
  Serious: Yes (Other)
  Sender: FDA-Public Use
  Company Number: US-BRISTOL-MYERS SQUIBB COMPANY-13306253

PATIENT
  Sex: Female

DRUGS (8)
  1. IFOSFAMIDE [Suspect]
     Indication: CERVIX CARCINOMA
     Route: 042
  2. CARBOPLATIN [Suspect]
     Indication: CERVIX CARCINOMA
     Route: 042
  3. PACLITAXEL [Suspect]
     Indication: CERVIX CARCINOMA
     Route: 042
  4. ONDANSETRON [Concomitant]
     Indication: PREMEDICATION
     Route: 042
  5. GRANISETRON [Concomitant]
     Indication: PREMEDICATION
  6. DEXAMETHASONE TAB [Concomitant]
     Indication: PREMEDICATION
     Route: 048
  7. DIPHENHYDRAMINE [Concomitant]
     Indication: PREMEDICATION
     Route: 042
  8. CIMETIDINE [Concomitant]
     Indication: PREMEDICATION
     Route: 042

REACTIONS (1)
  - DEEP VEIN THROMBOSIS [None]
